FAERS Safety Report 8852322 (Version 4)
Quarter: 2019Q1

REPORT INFORMATION
  Report Type: Spontaneous
  Country: FR (occurrence: FR)
  Receive Date: 20121022
  Receipt Date: 20190122
  Transmission Date: 20190418
  Serious: Yes (Hospitalization, Congenital Anomaly)
  Sender: FDA-Public Use
  Company Number: FR-SANOFI-AVENTIS-2012SA075084

PATIENT
  Age: 86 Year
  Sex: Female

DRUGS (22)
  1. LOVENOX [Suspect]
     Active Substance: ENOXAPARIN SODIUM
     Indication: PRODUCT USED FOR UNKNOWN INDICATION
     Dosage: UNK UNK,UNK
     Route: 051
     Dates: start: 20120628, end: 20120704
  2. RABEPRAZOLE SODIUM. [Suspect]
     Active Substance: RABEPRAZOLE SODIUM
     Indication: PRODUCT USED FOR UNKNOWN INDICATION
     Dosage: UNK UNK,UNK
     Route: 065
     Dates: start: 20120610
  3. COUMADINE [Concomitant]
     Active Substance: WARFARIN SODIUM
     Dosage: 10 MG,UNK
     Route: 048
  4. DIFFU K [Concomitant]
     Active Substance: POTASSIUM CHLORIDE
     Dosage: 600 MG,UNK
     Route: 048
  5. AMOXICILLIN/CLAVULANIC ACID [Suspect]
     Active Substance: AMOXICILLIN\CLAVULANIC ACID
     Dosage: UNK UNK,UNK
     Route: 065
     Dates: start: 20120718, end: 20120719
  6. FLECAINE [Concomitant]
     Active Substance: FLECAINIDE
     Dosage: UNK UNK, UNK
     Route: 065
  7. FURADANTINE [Concomitant]
     Active Substance: NITROFURANTOIN
     Dosage: UNK UNK,UNK
     Route: 048
     Dates: start: 20120712, end: 20120713
  8. IMOVANE [Suspect]
     Active Substance: ZOPICLONE
     Dosage: UNK UNK,UNK
     Route: 048
     Dates: start: 20120704
  9. OXAZEPAM. [Suspect]
     Active Substance: OXAZEPAM
     Indication: PRODUCT USED FOR UNKNOWN INDICATION
     Dosage: UNK UNK,UNK
     Route: 065
     Dates: start: 20120713
  10. ARIXTRA [Suspect]
     Active Substance: FONDAPARINUX SODIUM
     Indication: PRODUCT USED FOR UNKNOWN INDICATION
     Dosage: UNK UNK,UNK
     Route: 065
     Dates: start: 20120704, end: 20120717
  11. LEVOTHYROXINE SODIUM. [Concomitant]
     Active Substance: LEVOTHYROXINE SODIUM
     Dosage: 9 GTT DROPS, QD
     Route: 048
  12. SINTROM [Concomitant]
     Active Substance: ACENOCOUMAROL
     Dosage: 2 MG,QD
     Route: 048
     Dates: end: 20120627
  13. ECONAZOLE NITRATE. [Concomitant]
     Active Substance: ECONAZOLE NITRATE
     Indication: FUNGAL INFECTION
     Dosage: UNK
     Route: 003
     Dates: start: 20120725
  14. CIPROFLOXACIN HYDROCHLORIDE. [Suspect]
     Active Substance: CIPROFLOXACIN HYDROCHLORIDE
     Dosage: UNK UNK,UNK
     Route: 065
     Dates: start: 20120713, end: 20120723
  15. AMOXICILLIN/CLAVULANIC ACID [Suspect]
     Active Substance: AMOXICILLIN\CLAVULANIC ACID
     Indication: PRODUCT USED FOR UNKNOWN INDICATION
     Dosage: UNK UNK,UNK
     Route: 065
     Dates: start: 20120713, end: 20120713
  16. CEFUROXIME SODIUM. [Concomitant]
     Active Substance: CEFUROXIME SODIUM
     Dosage: UNK
     Dates: start: 20120629, end: 20120704
  17. DAKINS FULL [Concomitant]
     Active Substance: SODIUM HYPOCHLORITE
     Indication: WOUND TREATMENT
     Dosage: UNK UNK, UNK
     Route: 003
     Dates: start: 20120725, end: 20120725
  18. LOVENOX [Suspect]
     Active Substance: ENOXAPARIN SODIUM
     Dosage: UNK UNK,UNK
     Route: 051
     Dates: start: 20120717, end: 20120723
  19. POVIDONE-IODINE. [Concomitant]
     Active Substance: POVIDONE-IODINE
     Indication: WOUND TREATMENT
     Dosage: UNK UNK, UNK
     Route: 003
     Dates: start: 201207, end: 20120725
  20. HAVLANE [Concomitant]
     Active Substance: LOPRAZOLAM
     Dosage: 1 MG,QD
     Route: 048
  21. DOLIPRANE [Concomitant]
     Active Substance: ACETAMINOPHEN
     Dosage: 500 MG,UNK
     Route: 048
  22. FRAXODI [Concomitant]
     Active Substance: NADROPARIN CALCIUM
     Dosage: .7 ML,UNK
     Route: 065

REACTIONS (5)
  - Erythema [Recovered/Resolved]
  - Dermatitis exfoliative generalised [Recovered/Resolved]
  - Alopecia [Recovering/Resolving]
  - Drug reaction with eosinophilia and systemic symptoms [Recovered/Resolved with Sequelae]
  - Oedema [Unknown]

NARRATIVE: CASE EVENT DATE: 20120725
